FAERS Safety Report 5412732-7 (Version None)
Quarter: 2007Q3

REPORT INFORMATION
  Report Type: 
  Country: None (occurrence: None)
  Receive Date: 20070813
  Receipt Date: 20070807
  Transmission Date: 20080115
  Serious: Yes (Other)
  Sender: FDA-Public Use
  Company Number: US-AMGEN-US235895

PATIENT
  Sex: Female
  Weight: 84 kg

DRUGS (4)
  1. ENBREL [Suspect]
     Indication: RHEUMATOID ARTHRITIS
     Route: 058
     Dates: start: 20061005
  2. METHOTREXATE [Concomitant]
     Route: 048
     Dates: start: 20060621
  3. FLEXERIL [Concomitant]
     Route: 065
     Dates: start: 20060623
  4. PREDNISONE TAB [Concomitant]
     Route: 065
     Dates: start: 20060630, end: 20070116

REACTIONS (3)
  - IRON DEFICIENCY [None]
  - UPPER RESPIRATORY TRACT INFECTION [None]
  - VENTRICULAR EXTRASYSTOLES [None]
